FAERS Safety Report 8021813 (Version 2)
Quarter: 2013Q3

REPORT INFORMATION
  Report Type: Spontaneous
  Country: US (occurrence: US)
  Receive Date: 20110705
  Receipt Date: 20130716
  Transmission Date: 20140515
  Serious: Yes (Other)
  Sender: FDA-Public Use
  Company Number: US-JNJFOC-20110405073

PATIENT
  Age: 42 Year
  Sex: Female
  Weight: 83.46 kg

DRUGS (6)
  1. REMICADE [Suspect]
     Indication: PSORIATIC ARTHROPATHY
     Route: 042
     Dates: start: 20021218
  2. REMICADE [Suspect]
     Indication: PSORIATIC ARTHROPATHY
     Dosage: LAST INFUISON RECEIVED
     Route: 042
     Dates: start: 20110218, end: 20110218
  3. REMICADE [Suspect]
     Indication: PSORIASIS
     Route: 042
     Dates: start: 20021218
  4. REMICADE [Suspect]
     Indication: PSORIASIS
     Dosage: LAST INFUISON RECEIVED
     Route: 042
     Dates: start: 20110218, end: 20110218
  5. MULTIVITAMINS [Concomitant]
     Route: 065
     Dates: start: 20040927
  6. CALCIUM AND VITAMIN D [Concomitant]
     Route: 065
     Dates: start: 20050505

REACTIONS (2)
  - Erythema multiforme [Recovered/Resolved]
  - Angioedema [Recovered/Resolved]
